FAERS Safety Report 9400897 (Version 2)
Quarter: 2014Q1

REPORT INFORMATION
  Report Type: Spontaneous
  Country: US (occurrence: US)
  Receive Date: 20130715
  Receipt Date: 20140203
  Transmission Date: 20141002
  Serious: Yes (Hospitalization)
  Sender: FDA-Public Use
  Company Number: US-GLAXOSMITHKLINE-A1033016A

PATIENT
  Age: 60 Year
  Sex: Female

DRUGS (1)
  1. AVANDIA [Suspect]
     Indication: DIABETES MELLITUS
     Dosage: 4MG TWICE PER DAY
     Route: 048
     Dates: start: 20010613, end: 20040407

REACTIONS (7)
  - Cerebrovascular accident [Unknown]
  - Acute coronary syndrome [Unknown]
  - Angina unstable [Unknown]
  - Nerve injury [Unknown]
  - Dry eye [Unknown]
  - Blood glucose increased [Unknown]
  - Depression [Unknown]
